FAERS Safety Report 7806200-2 (Version None)
Quarter: 2011Q4

REPORT INFORMATION
  Report Type: 
  Country: None (occurrence: None)
  Receive Date: 20111011
  Receipt Date: 20110929
  Transmission Date: 20120403
  Serious: Yes (Hospitalization, Other)
  Sender: FDA-Public Use
  Company Number: JP-ELI_LILLY_AND_COMPANY-JP201108005079

PATIENT
  Sex: Male
  Weight: 71 kg

DRUGS (8)
  1. TIZANIDINE HCL [Concomitant]
     Indication: PROPHYLAXIS
     Dosage: 1 MG, BID
     Route: 048
  2. OMEPRAZOLE [Concomitant]
     Indication: PROPHYLAXIS
     Dosage: 20 MG, QD
     Route: 048
  3. CEPHADOL [Concomitant]
     Indication: PROPHYLAXIS
     Dosage: 25 MG, TID
     Route: 048
  4. AVASTIN [Concomitant]
     Indication: LUNG ADENOCARCINOMA STAGE IV
     Dosage: 1090 MG, UNK
     Route: 042
     Dates: start: 20110801, end: 20110801
  5. AVAPRO [Concomitant]
     Indication: HYPERTENSION
     Dosage: 200 MG, BID
     Route: 048
  6. FENTANYL CITRATE [Concomitant]
     Indication: CANCER PAIN
     Dosage: UNK
     Route: 062
  7. ALIMTA [Suspect]
     Indication: LUNG ADENOCARCINOMA STAGE IV
     Dosage: 880 MG, UNK
     Route: 042
     Dates: start: 20110801, end: 20110801
  8. CARBOPLATIN [Concomitant]
     Indication: LUNG ADENOCARCINOMA STAGE IV
     Dosage: 730 MG, UNK
     Route: 042
     Dates: start: 20110801, end: 20110801

REACTIONS (4)
  - PLATELET COUNT DECREASED [None]
  - SEPTIC SHOCK [None]
  - VENOUS THROMBOSIS LIMB [None]
  - CHOLECYSTITIS ACUTE [None]
